FAERS Safety Report 15396922 (Version 1)
Quarter: 2018Q3

REPORT INFORMATION
  Report Type: Spontaneous
  Country: US (occurrence: US)
  Receive Date: 20180913
  Receipt Date: 20180913
  Transmission Date: 20181010
  Serious: No
  Sender: FDA-Public Use
  Company Number: None

PATIENT
  Age: 67 Year
  Sex: Female
  Weight: 81.65 kg

DRUGS (2)
  1. ENBREL [Suspect]
     Active Substance: ETANERCEPT
     Indication: SENILE OSTEOPOROSIS
     Dosage: INJECT 80MG SUBCUTANEIYSKT IBCE WEEJKT USING  THE AUTO TOUCH AS DIRECTED?
     Route: 058
     Dates: start: 201804
  2. ENBREL [Suspect]
     Active Substance: ETANERCEPT
     Indication: RHEUMATOID ARTHRITIS
     Dosage: INJECT 80MG SUBCUTANEIYSKT IBCE WEEJKT USING  THE AUTO TOUCH AS DIRECTED?
     Route: 058
     Dates: start: 201804

REACTIONS (1)
  - Dry skin [None]
